FAERS Safety Report 16817572 (Version 1)
Quarter: 2019Q4

REPORT INFORMATION
  Report Type: Spontaneous
  Country: US (occurrence: US)
  Receive Date: 20190917
  Receipt Date: 20190917
  Transmission Date: 20200122
  Serious: Yes (Hospitalization, Disabling)
  Sender: FDA-Public Use
  Company Number: None

PATIENT
  Age: 38 Year
  Sex: Male
  Weight: 92.25 kg

DRUGS (1)
  1. CIPROFLOXACIN 250MG [Suspect]
     Active Substance: CIPROFLOXACIN
     Indication: URINARY TRACT INFECTION
     Route: 048
     Dates: start: 20190808, end: 20190813

REACTIONS (5)
  - Chest pain [None]
  - Hypoaesthesia [None]
  - Anxiety [None]
  - Depression [None]
  - Panic attack [None]

NARRATIVE: CASE EVENT DATE: 20190812
